FAERS Safety Report 18352560 (Version 1)
Quarter: 2020Q4

REPORT INFORMATION
  Report Type: Spontaneous
  Country: US (occurrence: US)
  Receive Date: 20201006
  Receipt Date: 20201006
  Transmission Date: 20210114
  Serious: No
  Sender: FDA-Public Use
  Company Number: US-ALLERGAN-2030783US

PATIENT
  Sex: Female

DRUGS (2)
  1. LINZESS [Suspect]
     Active Substance: LINACLOTIDE
     Indication: IRRITABLE BOWEL SYNDROME
     Dosage: 290 ?G, PRN
     Dates: start: 202006
  2. LINZESS [Suspect]
     Active Substance: LINACLOTIDE
     Dosage: 290 ?G, BID
     Dates: end: 202006

REACTIONS (4)
  - Inappropriate schedule of product administration [Unknown]
  - Constipation [Unknown]
  - Incorrect dose administered [Unknown]
  - Therapy interrupted [Unknown]
